FAERS Safety Report 8785585 (Version 1)
Quarter: 2012Q4

REPORT INFORMATION
  Report Type: Spontaneous
  Country: US (occurrence: None)
  Receive Date: 20120904
  Receipt Date: 20120904
  Transmission Date: 20130627
  Serious: Yes (Life-Threatening)
  Sender: FDA-Public Use
  Company Number: 001029657A

PATIENT
  Age: 13 Year
  Sex: Female

DRUGS (3)
  1. SHEER COVER MINERAL FOUNDATION SPF-15 BISQUE [Suspect]
     Dates: start: 20111014
  2. MOISTURIZER SPF15 [Suspect]
  3. UNSPECIFIED INGREDIENT [Concomitant]

REACTIONS (2)
  - Pharyngeal oedema [None]
  - Urticaria [None]
